FAERS Safety Report 25031761 (Version 1)
Quarter: 2025Q1

REPORT INFORMATION
  Report Type: Spontaneous
  Country: US (occurrence: None)
  Receive Date: 20250302
  Receipt Date: 20250302
  Transmission Date: 20250409
  Serious: Yes (Hospitalization)
  Sender: FDA-CTU
  Company Number: None

PATIENT
  Age: 76 Year
  Sex: Female
  Weight: 59.85 kg

DRUGS (10)
  1. MELOXICAM [Suspect]
     Active Substance: MELOXICAM
     Indication: Inflammatory pain
     Dosage: OTHER QUANTITY : 1 TABLET(S);?FREQUENCY : DAILY;?
     Route: 048
     Dates: start: 20241029, end: 20241215
  2. DEVICE [Suspect]
     Active Substance: DEVICE
  3. VITAMINS [Concomitant]
     Active Substance: VITAMINS
  4. c [Concomitant]
  5. d [Concomitant]
  6. TOCOPHEROL [Concomitant]
     Active Substance: TOCOPHEROL
  7. COENZYME Q10 [Concomitant]
     Active Substance: DIETARY SUPPLEMENT\UBIDECARENONE
  8. CURCUMIN [Concomitant]
     Active Substance: CURCUMIN
  9. hisbiscus tea [Concomitant]
  10. hawthorne berry [Concomitant]

REACTIONS (4)
  - Bundle branch block left [None]
  - Blood pressure increased [None]
  - Cough [None]
  - Muscle tightness [None]

NARRATIVE: CASE EVENT DATE: 20250202
